FAERS Safety Report 8278659-0 (Version None)
Quarter: 2012Q2

REPORT INFORMATION
  Report Type: 
  Country: None (occurrence: None)
  Receive Date: 20120412
  Receipt Date: 20120406
  Transmission Date: 20120825
  Serious: Yes (Hospitalization, Other)
  Sender: FDA-Public Use
  Company Number: US-AMGEN-USASP2011024956

PATIENT
  Age: 12 Year
  Sex: Male

DRUGS (1)
  1. SENSIPAR [Suspect]
     Indication: RENAL FAILURE CHRONIC
     Dosage: 60 MG, QD

REACTIONS (5)
  - HAEMODIALYSIS [None]
  - LOWER LIMB FRACTURE [None]
  - FALL [None]
  - FEMUR FRACTURE [None]
  - IMPAIRED HEALING [None]
